FAERS Safety Report 7546485-3 (Version None)
Quarter: 2011Q2

REPORT INFORMATION
  Report Type: 
  Country: None (occurrence: None)
  Receive Date: 20110614
  Receipt Date: 20110609
  Transmission Date: 20111010
  Serious: Yes (Congenital Anomaly, Other)
  Sender: FDA-Public Use
  Company Number: US-PFIZER INC-2008050202

PATIENT
  Sex: Female
  Weight: 3 kg

DRUGS (3)
  1. ZOLOFT [Suspect]
     Indication: STRESS
  2. ZOLOFT [Suspect]
     Indication: OBSESSIVE-COMPULSIVE DISORDER
     Dosage: 50 MG, UNK
     Route: 064
     Dates: start: 20000101
  3. LEXAPRO [Concomitant]
     Dosage: UNK
     Route: 064

REACTIONS (7)
  - JAUNDICE NEONATAL [None]
  - ATRIAL SEPTAL DEFECT [None]
  - LUNG DISORDER [None]
  - PERSISTENT FOETAL CIRCULATION [None]
  - PLASMINOGEN ACTIVATOR INHIBITOR [None]
  - DRUG EXPOSURE DURING PREGNANCY [None]
  - CARDIAC VALVE DISEASE [None]
